FAERS Safety Report 7020332-0 (Version None)
Quarter: 2010Q3

REPORT INFORMATION
  Report Type: 
  Country: None (occurrence: None)
  Receive Date: 20100929
  Receipt Date: 20100920
  Transmission Date: 20110219
  Serious: Yes (Other)
  Sender: FDA-Public Use
  Company Number: BR-ALLERGAN-1012367US

PATIENT
  Age: 82 Year
  Sex: Female

DRUGS (3)
  1. COMBIGAN [Suspect]
     Indication: PRODUCT USED FOR UNKNOWN INDICATION
     Dosage: 1 GTT, SINGLE
     Route: 047
     Dates: start: 20100920
  2. HYPROMELLOSE [Concomitant]
  3. DEXAMETHASONE [Concomitant]

REACTIONS (1)
  - HALLUCINATION [None]
